FAERS Safety Report 5995335-5 (Version None)
Quarter: 2008Q4

REPORT INFORMATION
  Report Type: 
  Country: None (occurrence: None)
  Receive Date: 20081212
  Receipt Date: 20080923
  Transmission Date: 20090506
  Serious: No
  Sender: FDA-Public Use
  Company Number: US-ABBOTT-08P-163-0478514-00

PATIENT
  Sex: Female
  Weight: 46.308 kg

DRUGS (3)
  1. HUMIRA [Suspect]
     Indication: COLITIS ULCERATIVE
     Route: 058
  2. HUMIRA [Suspect]
     Dosage: 80MG LOADING DOSE
     Route: 058
  3. HUMIRA [Suspect]
     Dosage: 160MG LOADING DOSE
     Route: 058
     Dates: start: 20080201

REACTIONS (4)
  - PRURITUS [None]
  - RASH [None]
  - RASH MACULAR [None]
  - THERMAL BURN [None]
